FAERS Safety Report 17667919 (Version 2)
Quarter: 2020Q2

REPORT INFORMATION
  Report Type: Spontaneous
  Country: US (occurrence: US)
  Receive Date: 20200414
  Receipt Date: 20200505
  Transmission Date: 20200713
  Serious: Yes (Other)
  Sender: FDA-Public Use
  Company Number: US-AMNEAL PHARMACEUTICALS-2020-AMRX-01023

PATIENT
  Sex: Female

DRUGS (2)
  1. OCALIVA [Suspect]
     Active Substance: OBETICHOLIC ACID
     Indication: PRODUCT USED FOR UNKNOWN INDICATION
     Dosage: 10 MILLIGRAM, QD
     Route: 048
  2. URSODIOL. [Suspect]
     Active Substance: URSODIOL
     Dosage: UNK
     Route: 065

REACTIONS (10)
  - Craniocerebral injury [Unknown]
  - Road traffic accident [Unknown]
  - Memory impairment [Unknown]
  - Concussion [Unknown]
  - Blood alkaline phosphatase abnormal [Unknown]
  - Pruritus [Unknown]
  - Choking [Unknown]
  - Dysphagia [Unknown]
  - Disease progression [Unknown]
  - Drug ineffective [Unknown]
